FAERS Safety Report 6238703-9 (Version None)
Quarter: 2009Q2

REPORT INFORMATION
  Report Type: 
  Country: None (occurrence: None)
  Receive Date: 20090622
  Receipt Date: 20090612
  Transmission Date: 20091009
  Serious: Yes (Death, Hospitalization, Other)
  Sender: FDA-Public Use
  Company Number: JP-PFIZER INC-2009213533

PATIENT
  Age: 54 Year

DRUGS (5)
  1. SUNITINIB MALATE [Suspect]
     Indication: RENAL CELL CARCINOMA
     Dosage: 50 MG, 1X/DAY
     Route: 048
     Dates: start: 20090313, end: 20090527
  2. BIOFERMIN [Concomitant]
     Indication: DIARRHOEA
     Dosage: UNK
     Route: 048
  3. HYPEN [Concomitant]
     Dosage: UNK
     Route: 048
  4. GASLON [Concomitant]
     Dosage: UNK
     Route: 048
  5. LOXONIN [Concomitant]
     Route: 048

REACTIONS (3)
  - BONE MARROW FAILURE [None]
  - HYPERCALCAEMIA [None]
  - HYPOXIA [None]
